FAERS Safety Report 15283729 (Version 1)
Quarter: 2018Q3

REPORT INFORMATION
  Report Type: Spontaneous
  Country: US (occurrence: US)
  Receive Date: 20180801
  Receipt Date: 20180801
  Transmission Date: 20181010
  Serious: Yes (Disabling)
  Sender: FDA-Public Use
  Company Number: None

PATIENT
  Age: 55 Year
  Sex: Male
  Weight: 72 kg

DRUGS (4)
  1. METFORMIN [Concomitant]
     Active Substance: METFORMIN HYDROCHLORIDE
  2. ALLERGY RELIEF NASAL SPRAY FLUTICASONE PROPIONATE (GLUCOCORTICOID) 50 [Suspect]
     Active Substance: FLUTICASONE PROPIONATE
     Indication: SINUS CONGESTION
     Dosage: QUANTITY:1 SPRAY(S);OTHER ROUTE:NASAL SPRAY?
  3. LIPITOR [Concomitant]
     Active Substance: ATORVASTATIN CALCIUM
  4. ALLERGY RELIEF NASAL SPRAY FLUTICASONE PROPIONATE (GLUCOCORTICOID) 50 [Suspect]
     Active Substance: FLUTICASONE PROPIONATE
     Indication: SEASONAL ALLERGY
     Dosage: QUANTITY:1 SPRAY(S);OTHER ROUTE:NASAL SPRAY?

REACTIONS (1)
  - Anosmia [None]

NARRATIVE: CASE EVENT DATE: 20180721
